FAERS Safety Report 14831972 (Version 1)
Quarter: 2018Q2

REPORT INFORMATION
  Report Type: Report from Study
  Country: IT (occurrence: IT)
  Receive Date: 20180501
  Receipt Date: 20180501
  Transmission Date: 20180711
  Serious: Yes (Death, Other)
  Sender: FDA-Public Use
  Company Number: IT-BAYER-2018-079347

PATIENT
  Age: 63 Year
  Sex: Male

DRUGS (15)
  1. TAMSULOSIN [Interacting]
     Active Substance: TAMSULOSIN
  2. GEMFIBROZIL. [Interacting]
     Active Substance: GEMFIBROZIL
  3. ACETYLSALICYLIC ACID [Suspect]
     Active Substance: ASPIRIN
  4. INFLUENZA VIRUS VACCINE [Interacting]
     Active Substance: INFLUENZA VIRUS VACCINE
  5. PARICALCITOL. [Interacting]
     Active Substance: PARICALCITOL
  6. SIMVASTATIN. [Interacting]
     Active Substance: SIMVASTATIN
  7. QUINAPRIL. [Interacting]
     Active Substance: QUINAPRIL
  8. INSULIN [Interacting]
     Active Substance: INSULIN NOS
  9. CALCIUM [Interacting]
     Active Substance: CALCIUM
  10. PREGABALIN. [Interacting]
     Active Substance: PREGABALIN
  11. TORSEMIDE. [Interacting]
     Active Substance: TORSEMIDE
  12. VALSARTAN. [Interacting]
     Active Substance: VALSARTAN
  13. HYDROCHLOROTHIAZIDE. [Interacting]
     Active Substance: HYDROCHLOROTHIAZIDE
  14. CLONIDINE. [Interacting]
     Active Substance: CLONIDINE
  15. FISH OIL [Interacting]
     Active Substance: FISH OIL

REACTIONS (19)
  - Pneumonia [None]
  - Rhabdomyolysis [None]
  - Hypoaesthesia [None]
  - Supraventricular tachycardia [None]
  - Drug interaction [None]
  - Arrhythmia [None]
  - Chromaturia [None]
  - Mobility decreased [None]
  - Guillain-Barre syndrome [None]
  - Pain in extremity [None]
  - Death [Fatal]
  - Sepsis [None]
  - Muscular weakness [None]
  - Nephropathy [None]
  - Cardiac failure [None]
  - Cardiopulmonary failure [None]
  - Paralysis [None]
  - Renal impairment [None]
  - Hypotonia [None]
